FAERS Safety Report 7503129-4 (Version None)
Quarter: 2011Q2

REPORT INFORMATION
  Report Type: 
  Country: None (occurrence: None)
  Receive Date: 20110525
  Receipt Date: 20110520
  Transmission Date: 20111010
  Serious: Yes (Other)
  Sender: FDA-Public Use
  Company Number: JP-PFIZER INC-2011109437

PATIENT
  Age: 71 Year
  Sex: Male

DRUGS (3)
  1. SELBEX [Concomitant]
     Dosage: UNK
     Route: 048
     Dates: end: 20110517
  2. EPLERENONE [Suspect]
     Indication: HYPERTENSION
     Dosage: UNK
     Route: 048
     Dates: start: 20110411, end: 20110512
  3. NATRIX [Concomitant]
     Dosage: UNK
     Route: 048
     Dates: end: 20110517

REACTIONS (1)
  - LIVER FUNCTION TEST ABNORMAL [None]
